FAERS Safety Report 13711032 (Version 3)
Quarter: 2017Q3

REPORT INFORMATION
  Report Type: Spontaneous
  Country: US (occurrence: US)
  Receive Date: 20170703
  Receipt Date: 20170920
  Transmission Date: 20171127
  Serious: No
  Sender: FDA-Public Use
  Company Number: US-LUPIN PHARMACEUTICALS INC.-2017-03362

PATIENT
  Sex: Female
  Weight: 118 kg

DRUGS (1)
  1. MIBELAS 24 FE [Suspect]
     Active Substance: ETHINYL ESTRADIOL\NORETHINDRONE ACETATE
     Indication: CONTRACEPTION
     Dosage: 1 DF, QD, EVERY MORNING
     Route: 065

REACTIONS (5)
  - Dysmenorrhoea [Recovered/Resolved]
  - Headache [Recovered/Resolved]
  - Malaise [Recovered/Resolved]
  - Metrorrhagia [Recovered/Resolved]
  - Product packaging issue [Unknown]
